FAERS Safety Report 11654656 (Version 1)
Quarter: 2015Q4

REPORT INFORMATION
  Report Type: Spontaneous
  Country: US (occurrence: None)
  Receive Date: 20151022
  Receipt Date: 20151022
  Transmission Date: 20160304
  Serious: Yes (Disabling)
  Sender: FDA-Public Use
  Company Number: None

PATIENT
  Age: 26 Year
  Sex: Male
  Weight: 77.11 kg

DRUGS (11)
  1. GOLDENSEAL [Concomitant]
     Active Substance: GOLDENSEAL
  2. SACCHAROMYCES BOULARDII [Concomitant]
     Active Substance: SACCHAROMYCES CEREVISIAE
  3. CAPRYLIC ACID [Concomitant]
  4. MULTIVITAMIN [Concomitant]
     Active Substance: VITAMINS
  5. NYSTATIN. [Concomitant]
     Active Substance: NYSTATIN
  6. KETOCONAZOLE. [Concomitant]
     Active Substance: KETOCONAZOLE
  7. MILK THISTLE [Concomitant]
     Active Substance: MILK THISTLE
  8. PAU D ARCO [Concomitant]
  9. GYMNEMA SYLVESTRE [Concomitant]
  10. PROBIOTIC [Concomitant]
     Active Substance: PROBIOTICS NOS
  11. SPORANOX [Suspect]
     Active Substance: ITRACONAZOLE
     Indication: FUNGAL INFECTION
     Route: 048
     Dates: start: 20151007, end: 20151015

REACTIONS (11)
  - Fear [None]
  - Headache [None]
  - Confusional state [None]
  - Dizziness [None]
  - Palpitations [None]
  - Disturbance in attention [None]
  - Dyspnoea [None]
  - Suicidal ideation [None]
  - Depression [None]
  - Disorientation [None]
  - Brain injury [None]

NARRATIVE: CASE EVENT DATE: 20151021
